FAERS Safety Report 4319791-3 (Version None)
Quarter: 2004Q1

REPORT INFORMATION
  Report Type: 
  Country: None (occurrence: None)
  Receive Date: 20040316
  Receipt Date: 20040227
  Transmission Date: 20041129
  Serious: Yes (Hospitalization)
  Sender: FDA-Public Use
  Company Number: 02100-USA-04-0003

PATIENT
  Age: 82 Year

DRUGS (13)
  1. PLETAL [Suspect]
     Indication: INTERMITTENT CLAUDICATION
     Dosage: 100 MG BID ORAL
     Route: 048
     Dates: start: 20030708, end: 20031231
  2. PLETAL [Suspect]
     Indication: INTERMITTENT CLAUDICATION
     Dosage: 50 MG BID ORAL
     Route: 048
     Dates: start: 20030708, end: 20031231
  3. PLACEBO [Suspect]
     Indication: INTERMITTENT CLAUDICATION
     Dosage: 2 DF BID ORAL
     Route: 048
     Dates: start: 20030708, end: 20031231
  4. PLACEBO [Suspect]
     Indication: INTERMITTENT CLAUDICATION
     Dosage: 1 DF BID ORAL
     Route: 048
     Dates: start: 20030708, end: 20031231
  5. MECLIZINE [Concomitant]
  6. LOVASTATIN [Concomitant]
  7. GLIPIZIDE [Concomitant]
  8. METFORMIN HCL [Concomitant]
  9. PRAZOSIN HCL [Concomitant]
  10. LISINOPRIL [Concomitant]
  11. DILTIAZEM [Concomitant]
  12. DIGOXIN [Concomitant]
  13. ASPIRIN [Concomitant]

REACTIONS (3)
  - ATRIAL FIBRILLATION [None]
  - CARDIAC FAILURE CONGESTIVE [None]
  - CHRONIC OBSTRUCTIVE AIRWAYS DISEASE [None]
